FAERS Safety Report 4817775-X (Version None)
Quarter: 2005Q3

REPORT INFORMATION
  Report Type: 
  Country: None (occurrence: None)
  Receive Date: 20050929
  Receipt Date: 20050810
  Transmission Date: 20060218
  Serious: No
  Sender: FDA-Public Use
  Company Number: 05P-163-0308026-00

PATIENT
  Age: 65 Year
  Sex: Male
  Weight: 100 kg

DRUGS (6)
  1. HUMIRA [Suspect]
     Indication: RHEUMATOID ARTHRITIS
     Dosage: 40 MG, 1 IN 2 WK, SUBCUTANEOUS
     Route: 058
     Dates: start: 20050609
  2. BACTRIM [Concomitant]
  3. CELECOXIB [Concomitant]
  4. FOLIC ACID [Concomitant]
  5. METHOTREXATE SODIUM [Concomitant]
  6. OMEPRAZOLE [Concomitant]

REACTIONS (4)
  - BACK PAIN [None]
  - PRURITUS [None]
  - RASH [None]
  - SINUSITIS [None]
